FAERS Safety Report 19072630 (Version 1)
Quarter: 2021Q1

REPORT INFORMATION
  Report Type: Spontaneous
  Country: TN (occurrence: TN)
  Receive Date: 20210330
  Receipt Date: 20210330
  Transmission Date: 20210420
  Serious: No
  Sender: FDA-Public Use
  Company Number: TN-B.I. PHARMACEUTICALS,INC./RIDGEFIELD-2021-BI-093036

PATIENT
  Age: 48 Year
  Sex: Male

DRUGS (1)
  1. JARDIANCE [Suspect]
     Active Substance: EMPAGLIFLOZIN
     Indication: TYPE 2 DIABETES MELLITUS
     Dates: end: 202103

REACTIONS (1)
  - Ketonuria [Unknown]
